FAERS Safety Report 5293728-5 (Version None)
Quarter: 2007Q2

REPORT INFORMATION
  Report Type: 
  Country: None (occurrence: None)
  Receive Date: 20070405
  Receipt Date: 20070323
  Transmission Date: 20071010
  Serious: Yes (Death, Life-Threatening, Hospitalization)
  Sender: FDA-Public Use
  Company Number: 070312-0000280

PATIENT
  Age: 13 Day
  Sex: Male
  Weight: 0.7 kg

DRUGS (4)
  1. INDOCID (INDOMETHACIN FOR INJECTION) [Suspect]
     Indication: PATENT DUCTUS ARTERIOSUS
     Dosage: IV
     Route: 042
  2. ALDACTONE [Concomitant]
  3. MULTI-VITAMIN [Concomitant]
  4. ESIDRIX [Concomitant]

REACTIONS (3)
  - LABORATORY TEST ABNORMAL [None]
  - MULTI-ORGAN FAILURE [None]
  - NECROTISING COLITIS [None]
